FAERS Safety Report 11586949 (Version 1)
Quarter: 2015Q3

REPORT INFORMATION
  Report Type: Spontaneous
  Country: US (occurrence: US)
  Receive Date: 20150916
  Receipt Date: 20150916
  Transmission Date: 20151125
  Serious: No
  Sender: FDA-Public Use
  Company Number: US-ELI_LILLY_AND_COMPANY-US200802002906

PATIENT
  Age: 79 Year
  Sex: Female

DRUGS (1)
  1. FORTEO [Suspect]
     Active Substance: TERIPARATIDE
     Indication: OSTEOPOROSIS
     Dates: start: 20080101, end: 200802

REACTIONS (6)
  - Mouth swelling [Recovering/Resolving]
  - Stomatitis [Recovered/Resolved]
  - Fear [Not Recovered/Not Resolved]
  - Aphonia [Not Recovered/Not Resolved]
  - Oral mucosal erythema [Recovering/Resolving]
  - Oral pain [Recovering/Resolving]

NARRATIVE: CASE EVENT DATE: 20080201
